FAERS Safety Report 8489822-8 (Version None)
Quarter: 2012Q3

REPORT INFORMATION
  Report Type: 
  Country: None (occurrence: None)
  Receive Date: 20120705
  Receipt Date: 20120626
  Transmission Date: 20120928
  Serious: Yes (Hospitalization)
  Sender: FDA-Public Use
  Company Number: US-ACTELION-A-US2012-62952

PATIENT

DRUGS (2)
  1. TRACLEER [Suspect]
     Indication: PULMONARY ARTERIAL HYPERTENSION
     Dosage: UNK
     Route: 048
     Dates: start: 20120127
  2. COUMADIN [Concomitant]

REACTIONS (11)
  - RENAL DISORDER [None]
  - CARDIAC FAILURE CONGESTIVE [None]
  - RIGHT VENTRICULAR FAILURE [None]
  - OXYGEN SATURATION DECREASED [None]
  - DYSPNOEA [None]
  - CONDITION AGGRAVATED [None]
  - VENTRICULAR TACHYCARDIA [None]
  - FLUID RETENTION [None]
  - WEIGHT INCREASED [None]
  - OEDEMA [None]
  - NO THERAPEUTIC RESPONSE [None]
